FAERS Safety Report 11654611 (Version 1)
Quarter: 2015Q4

REPORT INFORMATION
  Report Type: Spontaneous
  Country: US (occurrence: None)
  Receive Date: 20151022
  Receipt Date: 20151022
  Transmission Date: 20160304
  Serious: Yes (Hospitalization)
  Sender: FDA-Public Use
  Company Number: None

PATIENT
  Age: 66 Year
  Sex: Male
  Weight: 82.1 kg

DRUGS (15)
  1. HARVONI [Suspect]
     Active Substance: LEDIPASVIR\SOFOSBUVIR
     Indication: HEPATITIS C
     Dosage: 90MG/400MG
     Route: 048
     Dates: start: 20150528, end: 20150829
  2. ALFUZOSIN [Concomitant]
     Active Substance: ALFUZOSIN
  3. AMLODIPINE [Concomitant]
     Active Substance: AMLODIPINE BESYLATE
  4. GABAPENTIN. [Concomitant]
     Active Substance: GABAPENTIN
  5. ROCEPHIN [Concomitant]
     Active Substance: CEFTRIAXONE SODIUM
  6. ALBUTEROL. [Concomitant]
     Active Substance: ALBUTEROL
  7. PROSCAR [Concomitant]
     Active Substance: FINASTERIDE
  8. CIALIS [Concomitant]
     Active Substance: TADALAFIL
  9. TYLENOL [Concomitant]
     Active Substance: ACETAMINOPHEN
  10. LIPITOR [Concomitant]
     Active Substance: ATORVASTATIN CALCIUM
  11. TOPROL XL [Concomitant]
     Active Substance: METOPROLOL SUCCINATE
  12. ASPIRIN. [Concomitant]
     Active Substance: ASPIRIN
  13. SYMBICORT [Concomitant]
     Active Substance: BUDESONIDE\FORMOTEROL FUMARATE DIHYDRATE
  14. CIPRO [Concomitant]
     Active Substance: CIPROFLOXACIN HYDROCHLORIDE
  15. DETROL LA [Concomitant]
     Active Substance: TOLTERODINE TARTRATE

REACTIONS (6)
  - Dysuria [None]
  - Urine odour abnormal [None]
  - Pyrexia [None]
  - Abdominal discomfort [None]
  - Prostatitis [None]
  - Klebsiella test positive [None]

NARRATIVE: CASE EVENT DATE: 20150620
